FAERS Safety Report 8187977-6 (Version None)
Quarter: 2012Q1

REPORT INFORMATION
  Report Type: 
  Country: None (occurrence: None)
  Receive Date: 20120306
  Receipt Date: 20120228
  Transmission Date: 20120608
  Serious: Yes (Death)
  Sender: FDA-Public Use
  Company Number: US-ELI_LILLY_AND_COMPANY-US201202008546

PATIENT
  Sex: Male

DRUGS (1)
  1. ADCIRCA [Suspect]
     Indication: PULMONARY HYPERTENSION
     Dosage: 40 MG, QD
     Dates: start: 20111001

REACTIONS (2)
  - LUNG NEOPLASM MALIGNANT [None]
  - RESPIRATORY FAILURE [None]
